FAERS Safety Report 9447902 (Version 5)
Quarter: 2014Q1

REPORT INFORMATION
  Report Type: Report from Study
  Country: US (occurrence: US)
  Receive Date: 20130808
  Receipt Date: 20140226
  Transmission Date: 20141002
  Serious: Yes (Death, Hospitalization, Other)
  Sender: FDA-Public Use
  Company Number: PHHO2013US005281

PATIENT
  Age: 57 Year
  Sex: Female

DRUGS (2)
  1. SOM230 [Suspect]
     Indication: PANCREATIC CARCINOMA
     Dosage: 900 UG, BID
     Route: 058
     Dates: start: 20130409, end: 20130415
  2. DRUGS FOR TREATMENT OF HYPOGLYCEMIA [Concomitant]
     Route: 048

REACTIONS (13)
  - Pancreatic carcinoma [Fatal]
  - Thrombocytopenia [Recovered/Resolved with Sequelae]
  - Diarrhoea [Recovered/Resolved with Sequelae]
  - Abdominal pain [Recovered/Resolved]
  - Hyperglycaemia [Recovered/Resolved]
  - Ascites [Fatal]
  - Dyspnoea [Recovered/Resolved]
  - Clostridium difficile infection [Recovered/Resolved]
  - Hypotension [Recovered/Resolved]
  - Memory impairment [Recovered/Resolved]
  - Lung infection [Recovered/Resolved]
  - Anaemia [Recovered/Resolved]
  - Hypoglycaemia [Recovered/Resolved]
